FAERS Safety Report 6271244-1 (Version None)
Quarter: 2009Q3

REPORT INFORMATION
  Report Type: 
  Country: None (occurrence: None)
  Receive Date: 20090716
  Receipt Date: 20090716
  Transmission Date: 20100115
  Serious: No
  Sender: FDA-Public Use
  Company Number: None

PATIENT
  Age: 55 Year
  Sex: Male
  Weight: 75.2971 kg

DRUGS (1)
  1. LIPITOR [Suspect]
     Indication: HYPERLIPIDAEMIA
     Dosage: 40 MG -TWO 20 MG TABS- QD PO
     Route: 048
     Dates: start: 20090413, end: 20090416

REACTIONS (2)
  - DISORIENTATION [None]
  - FEELING ABNORMAL [None]
